FAERS Safety Report 20080581 (Version 2)
Quarter: 2021Q4

REPORT INFORMATION
  Report Type: Report from Study
  Country: US (occurrence: US)
  Receive Date: 20211117
  Receipt Date: 20211221
  Transmission Date: 20220303
  Serious: No
  Sender: FDA-Public Use
  Company Number: US-ALNYLAM PHARMACEUTICALS, INC.-ALN-2021-002922

PATIENT

DRUGS (8)
  1. GIVLAARI [Suspect]
     Active Substance: GIVOSIRAN SODIUM
     Indication: Porphyria
     Dosage: 1 VIAL VIA INJECTION EVERY MONTH
     Route: 065
     Dates: start: 20210528
  2. HEMIN [Suspect]
     Active Substance: HEMIN
     Indication: Porphyria
     Dosage: UNK
     Route: 065
     Dates: start: 2014
  3. DEXTROSE [Concomitant]
     Active Substance: DEXTROSE
     Indication: Product used for unknown indication
     Dosage: UNK
     Route: 065
     Dates: start: 2014
  4. VITAMIN C [Concomitant]
     Active Substance: ASCORBIC ACID
     Indication: Neoplasm malignant
     Dosage: UNK
     Route: 065
     Dates: start: 2021
  5. RIBOCICLIB [Concomitant]
     Active Substance: RIBOCICLIB
     Indication: Neoplasm malignant
     Dosage: UNK
     Route: 065
     Dates: start: 2021
  6. FASLODEX [Concomitant]
     Active Substance: FULVESTRANT
     Indication: Neoplasm malignant
     Dosage: UNK, MONTHLY
     Route: 065
     Dates: start: 2021
  7. XGEVA [Concomitant]
     Active Substance: DENOSUMAB
     Indication: Neoplasm malignant
     Dosage: NOW TAKING EVERY 3X MONTHS
     Route: 065
     Dates: start: 2021
  8. XGEVA [Concomitant]
     Active Substance: DENOSUMAB
     Dosage: UNK, MONTHLY
     Route: 065

REACTIONS (6)
  - Serum ferritin increased [Unknown]
  - Iron overload [Unknown]
  - Arthritis [Unknown]
  - Unevaluable event [Unknown]
  - Skin disorder [Recovering/Resolving]
  - Surgery [Unknown]

NARRATIVE: CASE EVENT DATE: 20210501
